FAERS Safety Report 7919601-9 (Version None)
Quarter: 2011Q4

REPORT INFORMATION
  Report Type: 
  Country: None (occurrence: None)
  Receive Date: 20111116
  Receipt Date: 20111116
  Transmission Date: 20120403
  Serious: Yes (Hospitalization)
  Sender: FDA-Public Use
  Company Number: None

PATIENT
  Age: 79 Year
  Sex: Female
  Weight: 80.4 kg

DRUGS (9)
  1. PRADAXA [Suspect]
     Indication: ATRIAL FIBRILLATION
     Dosage: 150 MG BID PO RECENT
     Route: 048
  2. ZESTRIL [Concomitant]
  3. ASPIRIN [Suspect]
     Indication: CORONARY ARTERY DISEASE
     Dosage: 1 DAILY PO
     Route: 048
  4. ASPIRIN [Suspect]
     Indication: ATRIAL FIBRILLATION
     Dosage: 1 DAILY PO
     Route: 048
  5. ZOCOR [Concomitant]
  6. M.V.I. [Concomitant]
  7. METOPROLOL TARTRATE [Concomitant]
  8. LASIX [Concomitant]
  9. NITROGLYCERIN [Concomitant]

REACTIONS (3)
  - UPPER GASTROINTESTINAL HAEMORRHAGE [None]
  - COLONIC POLYP [None]
  - CARDIAC FAILURE CONGESTIVE [None]
